FAERS Safety Report 12420655 (Version 5)
Quarter: 2021Q3

REPORT INFORMATION
  Report Type: Spontaneous
  Country: US (occurrence: US)
  Receive Date: 20160531
  Receipt Date: 20210924
  Transmission Date: 20211014
  Serious: Yes (Hospitalization, Other)
  Sender: FDA-Public Use
  Company Number: US-PFIZER INC-2016278355

PATIENT
  Age: 39 Year
  Sex: Male

DRUGS (12)
  1. METHYLPREDNISOLONE SODIUM SUCCINATE. [Suspect]
     Active Substance: METHYLPREDNISOLONE SODIUM SUCCINATE
     Indication: TRANSPLANT REJECTION
     Dosage: UNK
     Route: 042
  2. TACROLIMUS. [Suspect]
     Active Substance: TACROLIMUS
     Indication: IMMUNOSUPPRESSION
     Dosage: UNK
     Route: 061
  3. MYCOPHENOLATE MOFETIL. [Suspect]
     Active Substance: MYCOPHENOLATE MOFETIL
     Indication: IMMUNOSUPPRESSION
     Dosage: 1 G, 2X/DAY
     Route: 042
  4. TACROLIMUS. [Suspect]
     Active Substance: TACROLIMUS
     Dosage: 1.5 MG, 2X/DAY
  5. PREDNISONE. [Suspect]
     Active Substance: PREDNISONE
     Indication: IMMUNOSUPPRESSION
     Dosage: 5 MG, 1X/DAY
  6. VALGANCICLOVIR. [Concomitant]
     Active Substance: VALGANCICLOVIR
     Dosage: 900 MG, 2X/DAY
  7. MYCOPHENOLATE MOFETIL. [Suspect]
     Active Substance: MYCOPHENOLATE MOFETIL
     Dosage: 1 G, 2X/DAY
  8. VALGANCICLOVIR. [Concomitant]
     Active Substance: VALGANCICLOVIR
     Dosage: 450 MG, 3X/DAY
  9. TACROLIMUS. [Suspect]
     Active Substance: TACROLIMUS
     Indication: IMMUNOSUPPRESSION
     Dosage: TITRATED TO A GOAL TROUGH LEVEL OF 8?10 NG/ML
  10. ANTILYMPHOCYTE IMMUNOGLOBULINS [Suspect]
     Active Substance: THYMOCYTE IMMUNE GLOBULIN NOS
     Indication: IMMUNOSUPPRESSION
     Dosage: 3 DOSES OF 1.5 MG/KG/DAY
     Route: 042
  11. MYCOPHENOLATE MOFETIL. [Suspect]
     Active Substance: MYCOPHENOLATE MOFETIL
     Dosage: 500 MG, 2X/DAY
  12. VALGANCICLOVIR. [Concomitant]
     Active Substance: VALGANCICLOVIR
     Indication: ANTIVIRAL PROPHYLAXIS
     Dosage: 900 MG, DAILY

REACTIONS (2)
  - Cytomegalovirus viraemia [Recovered/Resolved]
  - Guillain-Barre syndrome [Recovering/Resolving]
